FAERS Safety Report 12081388 (Version 1)
Quarter: 2016Q1

REPORT INFORMATION
  Report Type: Spontaneous
  Country: NL (occurrence: NL)
  Receive Date: 20160216
  Receipt Date: 20160216
  Transmission Date: 20160526
  Serious: Yes (Hospitalization)
  Sender: FDA-Public Use
  Company Number: NL-CONCORDIA PHARMACEUTICALS INC.-CO-PL-NL-2016-045

PATIENT
  Age: 84 Year
  Sex: Female

DRUGS (14)
  1. ACETYLSALICYLIC ACID [Concomitant]
     Active Substance: ASPIRIN
  2. VASELINE PURE [Concomitant]
     Active Substance: PETROLATUM
  3. PREDNISOLONE. [Concomitant]
     Active Substance: PREDNISOLONE
  4. LORMETAZEPAM [Concomitant]
     Active Substance: LORMETAZEPAM
  5. MOVICOLON [Concomitant]
     Active Substance: POLYETHYLENE GLYCOL 3350\POTASSIUM CHLORIDE\SODIUM BICARBONATE\SODIUM CHLORIDE
  6. PLAQUENIL [Suspect]
     Active Substance: HYDROXYCHLOROQUINE SULFATE
     Indication: PRODUCT USED FOR UNKNOWN INDICATION
     Route: 048
  7. PERSANTIN [Concomitant]
     Active Substance: DIPYRIDAMOLE
  8. VALSARTAN. [Concomitant]
     Active Substance: VALSARTAN
  9. OCULOTECT [Concomitant]
  10. MIRTAZAPINE. [Concomitant]
     Active Substance: MIRTAZAPINE
  11. COLECALCIFEROL [Concomitant]
     Active Substance: CHOLECALCIFEROL
  12. SIMVASTATIN. [Concomitant]
     Active Substance: SIMVASTATIN
  13. SALBUTAMOL [Concomitant]
     Active Substance: ALBUTEROL
  14. OMEPRAZOLE. [Concomitant]
     Active Substance: OMEPRAZOLE

REACTIONS (1)
  - Liver function test abnormal [Unknown]
